FAERS Safety Report 6282896-4 (Version None)
Quarter: 2009Q3

REPORT INFORMATION
  Report Type: 
  Country: None (occurrence: None)
  Receive Date: 20090722
  Receipt Date: 20090722
  Transmission Date: 20100115
  Serious: Yes (Other)
  Sender: FDA-Public Use
  Company Number: None

PATIENT
  Age: 7 Year
  Sex: Female
  Weight: 49.8957 kg

DRUGS (2)
  1. SINGULAIR [Suspect]
     Indication: ASTHMA
     Dosage: 1 PILL DAILY PO
     Route: 048
  2. ASMANEX 110MCG SCHERING [Suspect]
     Indication: ASTHMA
     Dosage: 1 SPRAY DAILY INHAL
     Dates: start: 20090602, end: 20090702

REACTIONS (3)
  - ANXIETY [None]
  - DEPRESSION [None]
  - MOOD SWINGS [None]
